FAERS Safety Report 10598635 (Version 1)
Quarter: 2014Q4

REPORT INFORMATION
  Report Type: Spontaneous
  Country: US (occurrence: US)
  Receive Date: 20141121
  Receipt Date: 20141121
  Transmission Date: 20150529
  Serious: Yes (Other)
  Sender: FDA-Public Use
  Company Number: US-TEVA-522302USA

PATIENT
  Sex: Male

DRUGS (2)
  1. SURMONTIL [Suspect]
     Active Substance: TRIMIPRAMINE MALEATE
     Indication: SEXUAL ABUSE
     Dates: start: 1992
  2. SURMONTIL [Suspect]
     Active Substance: TRIMIPRAMINE MALEATE
     Indication: DEPRESSION
     Dates: start: 1984

REACTIONS (8)
  - Disorientation [Unknown]
  - Illogical thinking [Unknown]
  - Dyscalculia [Unknown]
  - Incoherent [Unknown]
  - Loose associations [Unknown]
  - Sedation [Unknown]
  - Delirium [Unknown]
  - Social phobia [Unknown]
